FAERS Safety Report 17402727 (Version 1)
Quarter: 2020Q1

REPORT INFORMATION
  Report Type: Spontaneous
  Country: US (occurrence: US)
  Receive Date: 20200210
  Receipt Date: 20200210
  Transmission Date: 20200409
  Serious: No
  Sender: FDA-Public Use
  Company Number: None

PATIENT
  Age: 84 Year
  Sex: Female
  Weight: 77.4 kg

DRUGS (2)
  1. WARFARIN [Suspect]
     Active Substance: WARFARIN
  2. CRANBERRY JUICE [Suspect]
     Active Substance: CRANBERRY JUICE
     Route: 048

REACTIONS (1)
  - Anticoagulation drug level below therapeutic [None]

NARRATIVE: CASE EVENT DATE: 20200127
